FAERS Safety Report 8197008-X (Version None)
Quarter: 2012Q1

REPORT INFORMATION
  Report Type: 
  Country: None (occurrence: None)
  Receive Date: 20120227
  Receipt Date: 20111103
  Transmission Date: 20120608
  Serious: Yes (Other)
  Sender: FDA-Public Use
  Company Number: 338748

PATIENT
  Age: 67 Year
  Sex: Female
  Weight: 80.7 kg

DRUGS (2)
  1. VICTOZA [Suspect]
     Indication: TYPE 2 DIABETES MELLITUS
     Dosage: 0.6 MG, QD, SUBCUTANEOUS 1.2 MG, QD
     Route: 058
     Dates: start: 20101001, end: 20111024
  2. VICTOZA [Suspect]
     Indication: TYPE 2 DIABETES MELLITUS
     Dosage: 0.6 MG, QD, SUBCUTANEOUS 1.2 MG, QD
     Route: 058
     Dates: start: 20100901, end: 20101001

REACTIONS (9)
  - DYSGEUSIA [None]
  - VOMITING [None]
  - DEHYDRATION [None]
  - NAUSEA [None]
  - GASTROOESOPHAGEAL REFLUX DISEASE [None]
  - DIARRHOEA [None]
  - DYSPEPSIA [None]
  - IMPAIRED GASTRIC EMPTYING [None]
  - ERUCTATION [None]
